FAERS Safety Report 20491284 (Version 2)
Quarter: 2022Q1

REPORT INFORMATION
  Report Type: Spontaneous
  Country: US (occurrence: US)
  Receive Date: 20220218
  Receipt Date: 20220308
  Transmission Date: 20220423
  Serious: No
  Sender: FDA-Public Use
  Company Number: US-BEH-2022142353

PATIENT
  Sex: Female

DRUGS (21)
  1. HIZENTRA [Suspect]
     Active Substance: HUMAN IMMUNOGLOBULIN G
     Indication: Nail dystrophy
     Dosage: 9 GRAM, QW
     Route: 058
     Dates: start: 20220214
  2. HIZENTRA [Suspect]
     Active Substance: HUMAN IMMUNOGLOBULIN G
     Indication: Immunodeficiency common variable
     Dosage: 9 GRAM, QW
     Route: 058
     Dates: start: 202201
  3. TYLENOL [Concomitant]
     Active Substance: ACETAMINOPHEN
     Indication: Premedication
  4. TYLENOL [Concomitant]
     Active Substance: ACETAMINOPHEN
     Indication: Premedication
  5. BENADRYL [Concomitant]
     Active Substance: DIPHENHYDRAMINE HYDROCHLORIDE
     Indication: Premedication
  6. BENADRYL [Concomitant]
     Active Substance: DIPHENHYDRAMINE HYDROCHLORIDE
     Indication: Premedication
  7. ALBUTEROL SULFATE [Concomitant]
     Active Substance: ALBUTEROL SULFATE
  8. BIOTIN [Concomitant]
     Active Substance: BIOTIN
  9. BUDESONIDE [Concomitant]
     Active Substance: BUDESONIDE
  10. GLYCOPYRROLATE\NEOSTIGMINE [Concomitant]
     Active Substance: GLYCOPYRROLATE\NEOSTIGMINE
  11. FORMOTEROL FUMARATE [Concomitant]
     Active Substance: FORMOTEROL FUMARATE
  12. BUSPIRONE HYDROCHLORIDE [Concomitant]
     Active Substance: BUSPIRONE HYDROCHLORIDE
     Dosage: 15 MILLIGRAM
  13. FLUTICASONE [Concomitant]
     Active Substance: FLUTICASONE
  14. FUROSEMIDE [Concomitant]
     Active Substance: FUROSEMIDE
  15. IPRATROPIUM [Concomitant]
     Active Substance: IPRATROPIUM
  16. LEVOTHYROXINE [Concomitant]
     Active Substance: LEVOTHYROXINE
  17. OMEPRAZOLE [Concomitant]
     Active Substance: OMEPRAZOLE
  18. PERCOCET [Concomitant]
     Active Substance: ACETAMINOPHEN\OXYCODONE HYDROCHLORIDE
  19. PROZAC DURAPAC [Concomitant]
  20. SODIUM BICARBONATE\SODIUM CHLORIDE [Concomitant]
     Active Substance: SODIUM BICARBONATE\SODIUM CHLORIDE
  21. VITAMIN D3 [Concomitant]
     Active Substance: CHOLECALCIFEROL

REACTIONS (5)
  - Injection site pain [Recovered/Resolved]
  - Somnolence [Recovered/Resolved]
  - No adverse event [Unknown]
  - Off label use [Unknown]
  - Injection site haemorrhage [Unknown]
